FAERS Safety Report 7618214-6 (Version None)
Quarter: 2011Q3

REPORT INFORMATION
  Report Type: 
  Country: None (occurrence: None)
  Receive Date: 20110718
  Receipt Date: 20110713
  Transmission Date: 20111222
  Serious: Yes (Other)
  Sender: FDA-Public Use
  Company Number: US-GLAXOSMITHKLINE-A0936727A

PATIENT
  Age: 32 Year
  Sex: Female

DRUGS (2)
  1. SUMATRIPTAN SUCCINATE [Suspect]
     Indication: MIGRAINE
     Dosage: 100MG VARIABLE DOSE
     Route: 048
  2. VISTARIL [Concomitant]

REACTIONS (2)
  - ABORTION SPONTANEOUS [None]
  - MATERNAL EXPOSURE DURING PREGNANCY [None]
